FAERS Safety Report 8121646-3 (Version None)
Quarter: 2012Q1

REPORT INFORMATION
  Report Type: 
  Country: None (occurrence: None)
  Receive Date: 20120208
  Receipt Date: 20120208
  Transmission Date: 20120608
  Serious: Yes (Hospitalization)
  Sender: FDA-Public Use
  Company Number: None

PATIENT
  Age: 42 Year
  Sex: Male
  Weight: 129.27 kg

DRUGS (2)
  1. COLCRYS [Suspect]
     Indication: CONDITION AGGRAVATED
     Dosage: .06MG
     Dates: start: 20111027, end: 20120207
  2. COLCRYS [Suspect]
     Indication: GOUT
     Dosage: .06MG
     Dates: start: 20111027, end: 20120207

REACTIONS (13)
  - CONDITION AGGRAVATED [None]
  - THROAT TIGHTNESS [None]
  - INSOMNIA [None]
  - SWELLING [None]
  - FACE OEDEMA [None]
  - TOXICITY TO VARIOUS AGENTS [None]
  - GOUT [None]
  - PHARYNGEAL DISORDER [None]
  - RASH ERYTHEMATOUS [None]
  - SPEECH DISORDER [None]
  - TREATMENT NONCOMPLIANCE [None]
  - DISCOMFORT [None]
  - RASH PRURITIC [None]
